FAERS Safety Report 10128099 (Version 1)
Quarter: 2014Q2

REPORT INFORMATION
  Report Type: Report from Study
  Country: DE (occurrence: DE)
  Receive Date: 20140428
  Receipt Date: 20140428
  Transmission Date: 20141212
  Serious: Yes (Other)
  Sender: FDA-Public Use
  Company Number: DE-ROCHE-1384499

PATIENT
  Age: 72 Year
  Sex: Female

DRUGS (2)
  1. PERTUZUMAB [Suspect]
     Indication: BREAST CANCER
     Route: 042
  2. TRASTUZUMAB [Suspect]
     Indication: BREAST CANCER
     Route: 042

REACTIONS (1)
  - Anaphylactic reaction [Unknown]
